FAERS Safety Report 14294684 (Version 4)
Quarter: 2018Q1

REPORT INFORMATION
  Report Type: Report from Study
  Country: None (occurrence: US)
  Receive Date: 20171218
  Receipt Date: 20180301
  Transmission Date: 20180509
  Serious: Yes (Other)
  Sender: FDA-Public Use
  Company Number: US-ABBVIE-17K-163-2011617-00

PATIENT
  Sex: Female

DRUGS (2)
  1. HUMIRA [Suspect]
     Active Substance: ADALIMUMAB
     Route: 058
  2. HUMIRA [Suspect]
     Active Substance: ADALIMUMAB
     Indication: CROHN^S DISEASE
     Route: 058

REACTIONS (21)
  - Acquired oesophageal web [Unknown]
  - Dysphagia [Unknown]
  - Depression [Not Recovered/Not Resolved]
  - Influenza [Unknown]
  - Ventricular extrasystoles [Unknown]
  - Vomiting [Unknown]
  - Defaecation urgency [Unknown]
  - Anxiety [Unknown]
  - Panic attack [Unknown]
  - Heart rate irregular [Not Recovered/Not Resolved]
  - Musculoskeletal chest pain [Unknown]
  - Autoimmune thyroiditis [Unknown]
  - Dizziness [Unknown]
  - Dyspnoea [Unknown]
  - Nasopharyngitis [Unknown]
  - Cough [Unknown]
  - Palpitations [Unknown]
  - Injection site pain [Recovering/Resolving]
  - Crohn^s disease [Unknown]
  - Pain [Unknown]
  - Crohn^s disease [Recovered/Resolved]

NARRATIVE: CASE EVENT DATE: 2017
